FAERS Safety Report 5983705-0 (Version None)
Quarter: 2008Q4

REPORT INFORMATION
  Report Type: 
  Country: None (occurrence: None)
  Receive Date: 20081205
  Receipt Date: 20081205
  Transmission Date: 20090506
  Serious: Yes (Hospitalization)
  Sender: FDA-Public Use
  Company Number: None

PATIENT
  Age: 66 Year
  Sex: Male

DRUGS (1)
  1. DIAZEPAM [Suspect]
     Dosage: 5 MG TID PO
     Route: 048
     Dates: start: 20080205, end: 20081020

REACTIONS (2)
  - CONVULSION [None]
  - MYOCLONUS [None]
